FAERS Safety Report 11221844 (Version 1)
Quarter: 2015Q2

REPORT INFORMATION
  Report Type: Report from Study
  Country: AU (occurrence: AU)
  Receive Date: 20150626
  Receipt Date: 20150626
  Transmission Date: 20150821
  Serious: Yes (Hospitalization)
  Sender: FDA-Public Use
  Company Number: AU-BAYER-2015-262485

PATIENT
  Age: 64 Year
  Sex: Female

DRUGS (2)
  1. STIVARGA [Suspect]
     Active Substance: REGORAFENIB
     Indication: COLORECTAL CANCER METASTATIC
     Dosage: 120 MG, QD
     Route: 048
     Dates: start: 20150614
  2. STIVARGA [Suspect]
     Active Substance: REGORAFENIB
     Indication: COLORECTAL CANCER METASTATIC
     Dosage: 160 MG DAILY DOSE
     Route: 048
     Dates: start: 20150517, end: 20150613

REACTIONS (6)
  - Diarrhoea [Recovered/Resolved]
  - Urinary tract infection [Not Recovered/Not Resolved]
  - Abdominal pain upper [Recovered/Resolved]
  - Rheumatoid arthritis [Recovered/Resolved]
  - Oropharyngeal pain [Not Recovered/Not Resolved]
  - Oral pain [Not Recovered/Not Resolved]

NARRATIVE: CASE EVENT DATE: 20150517
